FAERS Safety Report 25721188 (Version 1)
Quarter: 2025Q3

REPORT INFORMATION
  Report Type: Spontaneous
  Country: US (occurrence: None)
  Receive Date: 20250822
  Receipt Date: 20250822
  Transmission Date: 20251021
  Serious: Yes (Other)
  Sender: FDA-CTU
  Company Number: None

PATIENT
  Age: 66 Year
  Sex: Male
  Weight: 95.85 kg

DRUGS (7)
  1. FINASTERIDE [Suspect]
     Active Substance: FINASTERIDE
     Indication: Benign prostatic hyperplasia
     Dates: start: 20181001, end: 20240527
  2. TADALAFIL [Concomitant]
     Active Substance: TADALAFIL
  3. VALSARTAN [Concomitant]
     Active Substance: VALSARTAN
  4. ELIQUIS [Concomitant]
     Active Substance: APIXABAN
  5. LORATADINE [Concomitant]
     Active Substance: LORATADINE
  6. PALMIDROL [Concomitant]
     Active Substance: PALMIDROL
  7. MULTI-VITAMIN [Concomitant]
     Active Substance: .ALPHA.-TOCOPHEROL ACETATE, DL-\ASCORBIC ACID\CYANOCOBALAMIN\FLUORIDE ION\FOLIC ACID\NIACIN\PYRIDOXI

REACTIONS (6)
  - Blood testosterone decreased [None]
  - Sexual dysfunction [None]
  - Dry skin [None]
  - Pruritus [None]
  - Tinnitus [None]
  - Withdrawal syndrome [None]

NARRATIVE: CASE EVENT DATE: 20240501
